FAERS Safety Report 5880671-3 (Version None)
Quarter: 2008Q3

REPORT INFORMATION
  Report Type: 
  Country: None (occurrence: None)
  Receive Date: 20080912
  Receipt Date: 20080602
  Transmission Date: 20090109
  Serious: No
  Sender: FDA-Public Use
  Company Number: US-ABBOTT-08P-163-0455618-00

PATIENT
  Sex: Female
  Weight: 94.432 kg

DRUGS (4)
  1. HUMIRA [Suspect]
     Indication: PSORIASIS
     Dosage: TWO INJECTIONS
     Route: 050
     Dates: start: 20080411, end: 20080411
  2. HUMIRA [Suspect]
     Route: 050
  3. TALCONEX [Concomitant]
     Indication: PSORIASIS
     Route: 061
     Dates: start: 20070101
  4. CLOBETASOL PROPIONATE [Concomitant]
     Indication: PSORIASIS
     Route: 061
     Dates: start: 20070101

REACTIONS (2)
  - ACCIDENTAL EXPOSURE [None]
  - DRUG INEFFECTIVE [None]
